FAERS Safety Report 25590904 (Version 1)
Quarter: 2025Q3

REPORT INFORMATION
  Report Type: Spontaneous
  Country: US (occurrence: US)
  Receive Date: 20250722
  Receipt Date: 20250722
  Transmission Date: 20251020
  Serious: No
  Sender: MERCK SHARP & DOHME LLC
  Company Number: US-009507513-2298765

PATIENT
  Age: 78 Year
  Sex: Female
  Weight: 78.925 kg

DRUGS (17)
  1. KEYTRUDA [Suspect]
     Active Substance: PEMBROLIZUMAB
     Indication: Endometrial cancer
     Dates: end: 20250612
  2. LENVIMA [Suspect]
     Active Substance: LENVATINIB
     Indication: Endometrial cancer
     Route: 048
     Dates: start: 20250305, end: 20250612
  3. IRON [Concomitant]
     Active Substance: IRON
  4. LIDOCAINE [Concomitant]
     Active Substance: LIDOCAINE
  5. LISINOPRIL [Concomitant]
     Active Substance: LISINOPRIL
  6. MIRALAX [Concomitant]
     Active Substance: POLYETHYLENE GLYCOL 3350
  7. MOTRIN [Concomitant]
     Active Substance: IBUPROFEN
  8. VITAMINS [Concomitant]
     Active Substance: VITAMINS
  9. NARCAN [Concomitant]
     Active Substance: NALOXONE HYDROCHLORIDE
  10. NEURONTIN [Concomitant]
     Active Substance: GABAPENTIN
  11. FISH OIL\OMEGA-3 FATTY ACIDS [Concomitant]
     Active Substance: FISH OIL\OMEGA-3 FATTY ACIDS
  12. OXYBUTYNIN [Concomitant]
     Active Substance: OXYBUTYNIN
  13. PRAVASTATIN [Concomitant]
     Active Substance: PRAVASTATIN
  14. PROCHLORPERAZINE [Concomitant]
     Active Substance: PROCHLORPERAZINE
  15. SENOKOT [Concomitant]
     Active Substance: SENNOSIDES
  16. SYNTHROID [Concomitant]
     Active Substance: LEVOTHYROXINE SODIUM
  17. TYLENOL [Concomitant]
     Active Substance: ACETAMINOPHEN

REACTIONS (2)
  - Drug ineffective [Unknown]
  - Product use issue [Unknown]

NARRATIVE: CASE EVENT DATE: 20250305
